FAERS Safety Report 19850548 (Version 3)
Quarter: 2021Q4

REPORT INFORMATION
  Report Type: Spontaneous
  Country: US (occurrence: US)
  Receive Date: 20210917
  Receipt Date: 20211122
  Transmission Date: 20220303
  Serious: Yes (Hospitalization, Other)
  Sender: FDA-Public Use
  Company Number: US-009507513-2109USA003990

PATIENT
  Sex: Female
  Weight: 74.8 kg

DRUGS (35)
  1. KEYTRUDA [Suspect]
     Active Substance: PEMBROLIZUMAB
     Indication: Triple negative breast cancer
     Dosage: 200 MILLIGRAM, EVERY 21 DAYS
     Route: 042
     Dates: start: 20210510, end: 2021
  2. KEYTRUDA [Suspect]
     Active Substance: PEMBROLIZUMAB
     Dosage: 400 MILLIGRAM, EVERY 6 WEEKS
     Route: 042
     Dates: start: 20210628
  3. KEYTRUDA [Suspect]
     Active Substance: PEMBROLIZUMAB
     Dosage: 400 MILLIGRAM, EVERY 6 WEEKS. CYCLE 5
     Route: 042
     Dates: start: 2021, end: 2021
  4. TAXOL [Suspect]
     Active Substance: PACLITAXEL
  5. CARBOPLATIN [Suspect]
     Active Substance: CARBOPLATIN
  6. CYTOXAN [Suspect]
     Active Substance: CYCLOPHOSPHAMIDE
  7. ADRIAMYCIN [Suspect]
     Active Substance: DOXORUBICIN HYDROCHLORIDE
  8. DEXTROSE [Concomitant]
     Active Substance: DEXTROSE
  9. SODIUM CHLORIDE [Concomitant]
     Active Substance: SODIUM CHLORIDE
  10. ACETAMINOPHEN [Concomitant]
     Active Substance: ACETAMINOPHEN
     Dosage: 650 MILLIGRAM, ONCE
     Route: 048
  11. LIPITOR [Concomitant]
     Active Substance: ATORVASTATIN CALCIUM
     Dosage: 10 MILLIGRAM, BEDTIME
     Route: 048
     Dates: start: 20210218
  12. CHOLECALCIFEROL [Concomitant]
     Active Substance: CHOLECALCIFEROL
     Indication: Routine health maintenance
     Dosage: 1200 UNITS, DAILY
     Route: 048
  13. CHOLECALCIFEROL [Concomitant]
     Active Substance: CHOLECALCIFEROL
     Dosage: 2000 UNITS EVERY MORNING
  14. DAPSONE [Concomitant]
     Active Substance: DAPSONE
     Indication: Antifungal prophylaxis
     Dosage: 100 MILLIGRAM, DAILY
     Route: 048
  15. DIPHENHYDRAMINE [Concomitant]
     Active Substance: DIPHENHYDRAMINE
     Dosage: 50 MILLIGRAM, ONCE
     Route: 048
  16. PEPCID AC [Concomitant]
     Active Substance: FAMOTIDINE
     Dosage: 20 MILLIGRAM, BID
     Route: 048
  17. EMLA [Concomitant]
     Active Substance: LIDOCAINE\PRILOCAINE
     Dosage: APPLY 1 EACH TOPICALLY AS FOLLOWS FOR USE WITH PORT APPLY CREAM TO PORT SITE 30-60 MINUTES PRIOR TO
     Route: 061
  18. LORATADINE [Concomitant]
     Active Substance: LORATADINE
     Indication: Bone pain
     Dosage: 10 MILLIGRAM, DAILY
     Route: 048
  19. ZYPREXA [Concomitant]
     Active Substance: OLANZAPINE
     Indication: Nausea
     Dosage: 5 MILLIGRAM, BEDTIME
     Route: 048
  20. ZYPREXA [Concomitant]
     Active Substance: OLANZAPINE
     Indication: Vomiting
  21. DITROPAN [Concomitant]
     Active Substance: OXYBUTYNIN CHLORIDE
     Indication: Pollakiuria
     Dosage: 5 MILLIGRAM, DAILY
     Route: 048
  22. PREDNISOLONE [Concomitant]
     Active Substance: PREDNISOLONE
     Indication: Hypophysitis
     Dosage: 20 MILLIGRAM, DAILY (START ON 14-SEP-2021)
     Route: 048
  23. XARELTO [Concomitant]
     Active Substance: RIVAROXABAN
     Indication: Deep vein thrombosis
     Dosage: 15 MILLIGRAM, BID WITH MEALS FOR 21 DAYS THEN THE DOSE CHANGES TO 1 TAB (20 MG) ORALLY ONCE DAILY WI
     Route: 048
  24. VALTREX [Concomitant]
     Active Substance: VALACYCLOVIR HYDROCHLORIDE
     Indication: Herpes simplex
     Dosage: 500 MILLIGRAM, DAILY
     Route: 048
  25. HEPARIN SODIUM [Concomitant]
     Active Substance: HEPARIN SODIUM
     Dosage: 500 UNITS
  26. ATIVAN [Concomitant]
     Active Substance: LORAZEPAM
     Indication: Nausea
     Dosage: TAKE 1-2 TABLETS BY MOUTH EVERY 6 HOURS AS NEEDED
  27. ATIVAN [Concomitant]
     Active Substance: LORAZEPAM
     Indication: Anxiety
  28. MAGNESIUM HYDROXIDE [Concomitant]
     Active Substance: MAGNESIUM HYDROXIDE
     Indication: Constipation
     Dosage: TAKE 5 MLS BY MOUTH 2 TIMES DAILY AS NEEDED
     Route: 048
  29. ZOFRAN [Concomitant]
     Active Substance: ONDANSETRON HYDROCHLORIDE
     Indication: Nausea
     Dosage: 1 DOSAGE FORM, QD
  30. ZOFRAN [Concomitant]
     Active Substance: ONDANSETRON HYDROCHLORIDE
     Indication: Vomiting
  31. COMPAZINE [Concomitant]
     Active Substance: PROCHLORPERAZINE MALEATE
     Indication: Nausea
  32. COMPAZINE [Concomitant]
     Active Substance: PROCHLORPERAZINE MALEATE
     Indication: Vomiting
  33. SENOKOT [Concomitant]
     Active Substance: SENNOSIDES
     Indication: Constipation
     Dosage: TA_KE 1 LO 2 TABLETS BY MOUTH DAILY
     Route: 048
  34. TRAZODONE [Concomitant]
     Active Substance: TRAZODONE HYDROCHLORIDE
  35. NOVOLOG [Concomitant]
     Active Substance: INSULIN ASPART
     Dosage: INJECT UP TO 66 UNITS PER DAY VIA INSULIN PUMP

REACTIONS (58)
  - Deep vein thrombosis [Unknown]
  - Immune-mediated hypophysitis [Unknown]
  - Immune-mediated nephritis [Unknown]
  - Immune-mediated adrenal insufficiency [Recovered/Resolved]
  - Failure to thrive [Unknown]
  - White blood cell count decreased [Unknown]
  - Normocytic anaemia [Unknown]
  - Neutropenia [Unknown]
  - Loss of consciousness [Unknown]
  - Acute kidney injury [Recovered/Resolved]
  - Asthenia [Unknown]
  - Fatigue [Unknown]
  - Fall [Unknown]
  - Dizziness [Unknown]
  - Visual impairment [Unknown]
  - Nausea [Unknown]
  - Chills [Unknown]
  - Obesity [Unknown]
  - Mucosal dryness [Unknown]
  - Skin warm [Unknown]
  - Dry skin [Unknown]
  - Blood calcium decreased [Unknown]
  - Blood alkaline phosphatase increased [Unknown]
  - Protein total decreased [Unknown]
  - Blood albumin decreased [Unknown]
  - Lymphocyte count decreased [Unknown]
  - Monocyte count decreased [Unknown]
  - Neutrophil hypersegmented morphology present [Unknown]
  - Genital herpes simplex [Unknown]
  - Vitamin D deficiency [Unknown]
  - Arthralgia [Unknown]
  - Onychomycosis [Unknown]
  - Foot deformity [Unknown]
  - Diarrhoea [Unknown]
  - Tenosynovitis stenosans [Unknown]
  - Hypertonic bladder [Unknown]
  - Dehydration [Unknown]
  - Vision blurred [Unknown]
  - Malaise [Unknown]
  - Coagulopathy [Unknown]
  - Hypoaesthesia [Unknown]
  - Blood thyroid stimulating hormone decreased [Unknown]
  - Blood thyroid stimulating hormone decreased [Unknown]
  - Blood thyroid stimulating hormone decreased [Unknown]
  - Monoclonal gammopathy [Unknown]
  - Cystitis [Unknown]
  - Lymphadenopathy [Recovered/Resolved]
  - Spinal osteoarthritis [Unknown]
  - Blood cholesterol decreased [Unknown]
  - High density lipoprotein decreased [Unknown]
  - Low density lipoprotein decreased [Unknown]
  - Impaired self-care [Unknown]
  - Headache [Unknown]
  - Ill-defined disorder [Unknown]
  - Oedema peripheral [Unknown]
  - Blood glucose increased [Unknown]
  - Blood glucose decreased [Unknown]
  - Hypervitaminosis B12 [Unknown]

NARRATIVE: CASE EVENT DATE: 20210101
